FAERS Safety Report 8646554 (Version 7)
Quarter: 2014Q2

REPORT INFORMATION
  Report Type: Spontaneous
  Country: US (occurrence: US)
  Receive Date: 20120702
  Receipt Date: 20140530
  Transmission Date: 20141212
  Serious: Yes (Hospitalization, Disabling, Other)
  Sender: FDA-Public Use
  Company Number: US-009507513-1207USA00052

PATIENT
  Sex: Female
  Weight: 64.85 kg

DRUGS (9)
  1. FOSAMAX [Suspect]
     Indication: OSTEOPOROSIS
     Dosage: UNK
     Route: 048
     Dates: start: 1995
  2. BONIVA [Concomitant]
     Indication: OSTEOPOROSIS
     Dosage: 150 MG, QM
  3. BONIVA [Concomitant]
     Dosage: 150 MG Q3MO
  4. CALCIUM (UNSPECIFIED) (+) VITAMIN D (UNSPECIFIED) [Concomitant]
     Dosage: 1200 MG, QD
     Dates: start: 1988
  5. MIACALCIN [Concomitant]
     Indication: OSTEOPOROSIS
  6. THEO-DUR [Concomitant]
     Indication: ASTHMA
     Dosage: UNK, QD
  7. VANCERIL [Concomitant]
     Indication: ASTHMA
     Dosage: 8 PUFFS DAY
     Route: 055
  8. PROVENTIL [Concomitant]
     Indication: ASTHMA
     Dosage: 6 PUFFS QD
     Route: 055
  9. VIVELLE-DOT [Concomitant]

REACTIONS (82)
  - Femur fracture [Recovering/Resolving]
  - Open reduction of fracture [Unknown]
  - Osteoporosis [Unknown]
  - Stress fracture [Unknown]
  - Bone density decreased [Unknown]
  - Hysterectomy [Unknown]
  - Femur fracture [Unknown]
  - Hip fracture [Unknown]
  - Surgery [Unknown]
  - Medical device removal [Unknown]
  - Tooth extraction [Unknown]
  - Polypectomy [Unknown]
  - Tooth disorder [Unknown]
  - Periodontal disease [Unknown]
  - Hypercholesterolaemia [Unknown]
  - Rheumatoid arthritis [Unknown]
  - Angiopathy [Unknown]
  - Hormone therapy [Unknown]
  - Rotator cuff syndrome [Unknown]
  - Nasopharyngitis [Unknown]
  - Female sterilisation [Unknown]
  - Fall [Unknown]
  - Increased tendency to bruise [Unknown]
  - Weight increased [Unknown]
  - Skin discolouration [Unknown]
  - Heart rate irregular [Unknown]
  - Dyspnoea [Unknown]
  - Hypoaesthesia [Unknown]
  - Osteoarthritis [Unknown]
  - Osteopenia [Unknown]
  - Foot fracture [Unknown]
  - Foot fracture [Unknown]
  - Osteoarthritis [Unknown]
  - Irritable bowel syndrome [Unknown]
  - Carpal tunnel syndrome [Unknown]
  - Synovial cyst [Unknown]
  - Tendonitis [Unknown]
  - Bursitis [Unknown]
  - Anogenital warts [Unknown]
  - Anogenital warts [Unknown]
  - Anxiety [Unknown]
  - Dehydration [Unknown]
  - Colitis ulcerative [Unknown]
  - Attention deficit/hyperactivity disorder [Unknown]
  - Hypothyroidism [Unknown]
  - Sinusitis [Unknown]
  - Bacterial vaginosis [Unknown]
  - Herpes simplex [Unknown]
  - Foot fracture [Unknown]
  - Hyperglycaemia [Unknown]
  - Leukoplakia [Unknown]
  - Carotid artery stenosis [Unknown]
  - Limb injury [Unknown]
  - Synovial cyst [Unknown]
  - Arthropathy [Unknown]
  - Gastroenteritis [Unknown]
  - Medical device complication [Unknown]
  - Alveolar osteitis [Unknown]
  - Clavicle fracture [Unknown]
  - Atypical fracture [Unknown]
  - Muscular weakness [Unknown]
  - Fatigue [Unknown]
  - Depression [Unknown]
  - Dry skin [Unknown]
  - Dry eye [Unknown]
  - Dry mouth [Unknown]
  - Abdominal discomfort [Unknown]
  - Drug ineffective [Unknown]
  - Back pain [Unknown]
  - Nausea [Unknown]
  - Nausea [Unknown]
  - Headache [Unknown]
  - Vomiting [Unknown]
  - Alopecia [Unknown]
  - Drug ineffective [Unknown]
  - Gastrooesophageal reflux disease [Unknown]
  - Myalgia [Unknown]
  - Constipation [Unknown]
  - Pain in extremity [Unknown]
  - Pain in extremity [Unknown]
  - Chronic gastritis [Not Recovered/Not Resolved]
  - Drug ineffective [Unknown]
